FAERS Safety Report 15735861 (Version 7)
Quarter: 2020Q1

REPORT INFORMATION
  Report Type: Spontaneous
  Country: CZ (occurrence: CZ)
  Receive Date: 20181218
  Receipt Date: 20200229
  Transmission Date: 20200409
  Serious: Yes (Disabling, Other)
  Sender: FDA-Public Use
  Company Number: PHHY2018CZ181747

PATIENT
  Age: 82 Year
  Sex: Female

DRUGS (12)
  1. PREGABALIN. [Suspect]
     Active Substance: PREGABALIN
     Indication: SEIZURE
  2. CARBOPLATIN. [Suspect]
     Active Substance: CARBOPLATIN
     Indication: LARGE CELL LUNG CANCER
     Dosage: UNK
     Route: 065
  3. CARBOPLATIN. [Suspect]
     Active Substance: CARBOPLATIN
     Indication: NON-SMALL CELL LUNG CANCER
  4. CARBOPLATIN. [Suspect]
     Active Substance: CARBOPLATIN
     Indication: LUNG CARCINOMA CELL TYPE UNSPECIFIED STAGE IV
  5. FENTANYL. [Concomitant]
     Active Substance: FENTANYL
     Indication: CANCER PAIN
     Dosage: 50 UG, UNK (DOSE WAS GRADUALLY TITRATED UP TO 50 ?G PER HOUR))
     Route: 062
  6. TRAMADOL+PARACETAMOL [Suspect]
     Active Substance: ACETAMINOPHEN\TRAMADOL
     Indication: ANALGESIC THERAPY
  7. GABAPENTIN. [Suspect]
     Active Substance: GABAPENTIN
     Indication: RESTLESS LEGS SYNDROME
     Dosage: UNK
     Route: 065
  8. GABAPENTIN. [Suspect]
     Active Substance: GABAPENTIN
     Indication: SEIZURE
  9. TRANSTEC [Concomitant]
     Active Substance: BUPRENORPHINE
     Indication: PRODUCT USED FOR UNKNOWN INDICATION
     Dosage: DOSAGE TITRATION UP TO 70 MU/H
     Route: 062
  10. PARACETAMOL [Concomitant]
     Active Substance: ACETAMINOPHEN
     Indication: PRODUCT USED FOR UNKNOWN INDICATION
     Route: 065
  11. TRAMADOL+PARACETAMOL [Suspect]
     Active Substance: ACETAMINOPHEN\TRAMADOL
     Indication: CANCER PAIN
     Dosage: UNK
     Route: 048
  12. PREGABALIN. [Suspect]
     Active Substance: PREGABALIN
     Indication: RESTLESS LEGS SYNDROME
     Dosage: UNK
     Route: 065

REACTIONS (10)
  - Sleep deficit [Unknown]
  - Drug intolerance [Unknown]
  - Therapeutic product effect incomplete [Unknown]
  - Sensory disturbance [Unknown]
  - Cancer pain [Recovered/Resolved]
  - Restless legs syndrome [Recovered/Resolved]
  - Gastrointestinal toxicity [Recovered/Resolved]
  - Anaemia [Unknown]
  - Fatigue [Unknown]
  - Product use in unapproved indication [Unknown]
